FAERS Safety Report 7970036-2 (Version None)
Quarter: 2011Q4

REPORT INFORMATION
  Report Type: 
  Country: None (occurrence: None)
  Receive Date: 20111212
  Receipt Date: 20111130
  Transmission Date: 20120403
  Serious: No
  Sender: FDA-Public Use
  Company Number: ES-NOVOPROD-338856

PATIENT

DRUGS (5)
  1. LIRAGLUTIDE FLEXPEN [Suspect]
     Indication: TYPE 2 DIABETES MELLITUS
     Dosage: 1.2 MG, QD
     Route: 058
     Dates: start: 20110715, end: 20110721
  2. LIRAGLUTIDE FLEXPEN [Suspect]
     Dosage: 1.8 UNK, UNK
     Dates: start: 20110722, end: 20110727
  3. LIRAGLUTIDE FLEXPEN [Suspect]
     Dosage: 3.0 MG, QD
     Dates: start: 20110804
  4. LIRAGLUTIDE FLEXPEN [Suspect]
     Indication: OBESITY
     Dosage: 0.6 MG, UNK
     Route: 058
     Dates: start: 20110701, end: 20110714
  5. LIRAGLUTIDE FLEXPEN [Suspect]
     Dosage: 2.4 MG, QD
     Dates: start: 20110728, end: 20110803

REACTIONS (1)
  - LIPASE INCREASED [None]
